FAERS Safety Report 6066387-1 (Version None)
Quarter: 2009Q1

REPORT INFORMATION
  Report Type: 
  Country: None (occurrence: None)
  Receive Date: 20090205
  Receipt Date: 20090130
  Transmission Date: 20090719
  Serious: Yes (Hospitalization)
  Sender: FDA-Public Use
  Company Number: US-GILEAD-2009-0020103

PATIENT
  Sex: Male

DRUGS (9)
  1. LETAIRIS [Suspect]
     Indication: PULMONARY HYPERTENSION
     Route: 048
     Dates: start: 20080725
  2. ALBUTEROL [Concomitant]
  3. ATENOLOL [Concomitant]
  4. FAMOTIDINE [Concomitant]
  5. ENALAPRIL MALEATE [Concomitant]
  6. DARVOCET-N 100 [Concomitant]
  7. KLOR-CON [Concomitant]
  8. LASIX [Concomitant]
  9. CARDIZEM [Concomitant]

REACTIONS (3)
  - ANAEMIA [None]
  - CARDIAC FAILURE CONGESTIVE [None]
  - RENAL FAILURE [None]
